FAERS Safety Report 15308356 (Version 3)
Quarter: 2019Q1

REPORT INFORMATION
  Report Type: Report from Study
  Country: US (occurrence: US)
  Receive Date: 20180822
  Receipt Date: 20190124
  Transmission Date: 20190417
  Serious: Yes (Hospitalization, Other)
  Sender: FDA-Public Use
  Company Number: US-ACTELION-A-NJ2017-152674

PATIENT
  Age: 75 Year
  Sex: Female
  Weight: 97.52 kg

DRUGS (6)
  1. UPTRAVI [Suspect]
     Active Substance: SELEXIPAG
     Indication: PULMONARY ARTERIAL HYPERTENSION
     Dosage: 1600 MCG, BID
     Route: 048
  2. OPSUMIT [Suspect]
     Active Substance: MACITENTAN
     Indication: PULMONARY ARTERIAL HYPERTENSION
     Dosage: 10 MG, QD
     Route: 048
  3. XARELTO [Concomitant]
     Active Substance: RIVAROXABAN
  4. AMLODIPINE [Concomitant]
     Active Substance: AMLODIPINE BESYLATE
  5. OPSUMIT [Suspect]
     Active Substance: MACITENTAN
     Dosage: 10 MG, QD
     Route: 048
  6. REVATIO [Concomitant]
     Active Substance: SILDENAFIL CITRATE
     Dosage: UNK , UNK
     Route: 048

REACTIONS (17)
  - Dialysis [Unknown]
  - Seasonal allergy [Unknown]
  - Eating disorder [Unknown]
  - Headache [Unknown]
  - Weight increased [Unknown]
  - Product dose omission [Unknown]
  - Malaise [Unknown]
  - Weight decreased [Unknown]
  - Thyroid disorder [Unknown]
  - Foot fracture [Unknown]
  - Joint injury [Unknown]
  - Chest pain [Unknown]
  - Somnolence [Unknown]
  - Fluid retention [Unknown]
  - Sinus disorder [Unknown]
  - Fall [Unknown]
  - Diarrhoea [Unknown]
